FAERS Safety Report 10459334 (Version 1)
Quarter: 2014Q3

REPORT INFORMATION
  Report Type: Spontaneous
  Country: US (occurrence: US)
  Receive Date: 20140917
  Receipt Date: 20140917
  Transmission Date: 20150326
  Serious: Yes (Other)
  Sender: FDA-Public Use
  Company Number: US-ASTELLAS-2014US012412

PATIENT
  Sex: Female

DRUGS (2)
  1. UNSPECIFIED TRADITIONAL MEDICINE [Suspect]
     Active Substance: UNSPECIFIED INGREDIENT
     Indication: PRODUCT USED FOR UNKNOWN INDICATION
     Dosage: UNK UNK, UNKNOWN FREQ.
     Route: 065
  2. PROGRAF [Suspect]
     Active Substance: TACROLIMUS\TACROLIMUS ANHYDROUS
     Indication: PROPHYLAXIS AGAINST TRANSPLANT REJECTION
     Dosage: UNK UNK, UNKNOWN FREQ.
     Route: 065
     Dates: start: 1992

REACTIONS (4)
  - Ovarian cyst [Unknown]
  - Coagulopathy [Unknown]
  - International normalised ratio increased [Unknown]
  - Splenomegaly [Unknown]

NARRATIVE: CASE EVENT DATE: 2009
